FAERS Safety Report 7260396-2 (Version None)
Quarter: 2011Q1

REPORT INFORMATION
  Report Type: 
  Country: None (occurrence: None)
  Receive Date: 20110130
  Receipt Date: 20101109
  Transmission Date: 20110831
  Serious: No
  Sender: FDA-Public Use
  Company Number: US-ABBOTT-10P-163-0684434-00

PATIENT
  Age: 15 Year
  Sex: Female

DRUGS (3)
  1. HUMIRA [Suspect]
     Indication: CROHN'S DISEASE
     Dates: start: 20100401
  2. HUMIRA [Suspect]
     Dates: start: 20100901
  3. ENTOCORT EC [Concomitant]
     Indication: CROHN'S DISEASE

REACTIONS (3)
  - RASH PRURITIC [None]
  - CROHN'S DISEASE [None]
  - RASH PAPULAR [None]
